FAERS Safety Report 7590515-X (Version None)
Quarter: 2011Q3

REPORT INFORMATION
  Report Type: 
  Country: None (occurrence: None)
  Receive Date: 20110705
  Receipt Date: 20110628
  Transmission Date: 20111222
  Serious: Yes (Life-Threatening, Other)
  Sender: FDA-Public Use
  Company Number: US-BAXTER-2011BH019007

PATIENT
  Age: 52 Year
  Sex: Female
  Weight: 84 kg

DRUGS (4)
  1. GAMMAGARD LIQUID [Suspect]
     Route: 042
     Dates: start: 20110519, end: 20110519
  2. GAMMAGARD LIQUID [Suspect]
     Indication: OFF LABEL USE
     Route: 042
     Dates: start: 20110519, end: 20110519
  3. GAMMAGARD LIQUID [Suspect]
     Route: 042
     Dates: start: 20110519, end: 20110519
  4. GAMMAGARD LIQUID [Suspect]
     Indication: CHRONIC INFLAMMATORY DEMYELINATING POLYRADICULONEUROPATHY
     Route: 042
     Dates: start: 20110519, end: 20110519

REACTIONS (5)
  - CHEST DISCOMFORT [None]
  - VOMITING [None]
  - MYALGIA [None]
  - CHEST PAIN [None]
  - BACK PAIN [None]
